FAERS Safety Report 18413176 (Version 1)
Quarter: 2020Q4

REPORT INFORMATION
  Report Type: Spontaneous
  Country: US (occurrence: US)
  Receive Date: 20201021
  Receipt Date: 20201021
  Transmission Date: 20210114
  Serious: No
  Sender: FDA-Public Use
  Company Number: US-PFIZER INC-2020405049

PATIENT
  Age: 45 Year
  Sex: Female
  Weight: 52.16 kg

DRUGS (2)
  1. PROGESTERONE. [Suspect]
     Active Substance: PROGESTERONE
     Indication: BONE DISORDER
     Dosage: 100 MG, 1X/DAY [100 MG ONCE EVERY NIGHT]
     Route: 048
  2. PREMARIN [Suspect]
     Active Substance: ESTROGENS, CONJUGATED
     Indication: BONE DISORDER
     Dosage: 0.45 MG, 1X/DAY [0.45 MG ONCE EVERY NIGHT]
     Route: 048

REACTIONS (5)
  - Diarrhoea [Unknown]
  - Product use in unapproved indication [Unknown]
  - Irritability [Unknown]
  - Nervousness [Unknown]
  - Off label use [Unknown]
